FAERS Safety Report 24731501 (Version 1)
Quarter: 2024Q4

REPORT INFORMATION
  Report Type: Spontaneous
  Country: PT (occurrence: PT)
  Receive Date: 20241213
  Receipt Date: 20241213
  Transmission Date: 20250115
  Serious: Yes (Death, Other)
  Sender: ALEXION PHARMACEUTICALS
  Company Number: None

PATIENT
  Age: 1 Year
  Weight: 7.5 kg

DRUGS (16)
  1. NIRSEVIMAB [Suspect]
     Active Substance: NIRSEVIMAB
     Dosage: 100 MG
  2. NIRSEVIMAB [Suspect]
     Active Substance: NIRSEVIMAB
     Dosage: 100 MG
     Route: 030
  3. NIRSEVIMAB [Suspect]
     Active Substance: NIRSEVIMAB
     Dosage: 100 MG
  4. NIRSEVIMAB [Suspect]
     Active Substance: NIRSEVIMAB
     Dosage: 100 MG
     Route: 030
  5. INFLUVAC TETRA [Suspect]
     Active Substance: INFLUENZA VIRUS VACCINE QUADRIVALENT TYPE A+B
     Indication: Influenza immunisation
     Dosage: 0.5 ML
     Route: 030
  6. INFLUVAC TETRA [Suspect]
     Active Substance: INFLUENZA VIRUS VACCINE QUADRIVALENT TYPE A+B
     Dosage: 0.5 ML
  7. BOSENTANO ZENTIVA [Concomitant]
     Dosage: UNK
     Route: 048
  8. BOSENTANO ZENTIVA [Concomitant]
     Dosage: UNK
  9. SILDENAFIL [Concomitant]
     Active Substance: SILDENAFIL
     Dosage: UNK
     Route: 065
  10. SILDENAFIL [Concomitant]
     Active Substance: SILDENAFIL
     Dosage: UNK
     Route: 065
  11. CAPTOPRIL [Concomitant]
     Active Substance: CAPTOPRIL
     Dosage: UNK
     Route: 048
  12. CAPTOPRIL [Concomitant]
     Active Substance: CAPTOPRIL
     Dosage: UNK
  13. FUROSEMIDE [Concomitant]
     Active Substance: FUROSEMIDE
     Dosage: UNK
     Route: 065
  14. FUROSEMIDE [Concomitant]
     Active Substance: FUROSEMIDE
     Dosage: UNK
     Route: 065
  15. SPIRONOLACTONE [Concomitant]
     Active Substance: SPIRONOLACTONE
     Dosage: UNK
     Route: 048
  16. SPIRONOLACTONE [Concomitant]
     Active Substance: SPIRONOLACTONE
     Dosage: UNK

REACTIONS (1)
  - Cardio-respiratory arrest [Fatal]
